FAERS Safety Report 12521814 (Version 1)
Quarter: 2016Q3

REPORT INFORMATION
  Report Type: Spontaneous
  Country: US (occurrence: US)
  Receive Date: 20160701
  Receipt Date: 20160701
  Transmission Date: 20161109
  Serious: No
  Sender: FDA-Public Use
  Company Number: US-MAYNE PHARMA-2016MYN000116

PATIENT
  Sex: Male
  Weight: 65.31 kg

DRUGS (1)
  1. DORYX [Suspect]
     Active Substance: DOXYCYCLINE HYCLATE
     Indication: ANTIINFLAMMATORY THERAPY
     Dosage: 200 MG, QD
     Route: 048
     Dates: start: 20160224, end: 20160225

REACTIONS (2)
  - Back pain [Recovered/Resolved]
  - Nausea [Recovered/Resolved]

NARRATIVE: CASE EVENT DATE: 20160224
